FAERS Safety Report 24698371 (Version 1)
Quarter: 2024Q4

REPORT INFORMATION
  Report Type: Spontaneous
  Country: US (occurrence: US)
  Receive Date: 20241204
  Receipt Date: 20241204
  Transmission Date: 20250115
  Serious: No
  Sender: PRIMUS PHARMACEUTICALS
  Company Number: US-PRIMUS-2024-US-015227

PATIENT
  Age: 80 Year
  Sex: Female

DRUGS (3)
  1. IMPOYZ [Suspect]
     Active Substance: CLOBETASOL PROPIONATE
     Indication: Product used for unknown indication
     Dosage: APPLY TOPICALLY TWICE A DAY (MORNING AND EVENING) FOR 2 WEEKS
     Route: 061
  2. LOSARTAN [Concomitant]
     Active Substance: LOSARTAN
  3. DUPIXENT [Concomitant]
     Active Substance: DUPILUMAB

REACTIONS (1)
  - Drug ineffective [Not Recovered/Not Resolved]
